FAERS Safety Report 7913056-6 (Version None)
Quarter: 2011Q4

REPORT INFORMATION
  Report Type: 
  Country: None (occurrence: None)
  Receive Date: 20111114
  Receipt Date: 20110803
  Transmission Date: 20120403
  Serious: No
  Sender: FDA-Public Use
  Company Number: US-BAYER-2011-071393

PATIENT
  Age: 93 Year
  Sex: Female
  Weight: 73 kg

DRUGS (6)
  1. GLIPIZIDE [Concomitant]
  2. TAGAMET [Concomitant]
  3. METOPROLOL SUCCINATE [Concomitant]
  4. ALEVE (CAPLET) [Suspect]
     Indication: BACK PAIN
     Dosage: UNK UNK, ONCE
     Route: 048
  5. ZOCOR [Concomitant]
  6. MAXZIDE [Concomitant]

REACTIONS (1)
  - DRUG INEFFECTIVE [None]
